FAERS Safety Report 6763303-1 (Version None)
Quarter: 2010Q2

REPORT INFORMATION
  Report Type: 
  Country: None (occurrence: None)
  Receive Date: 20100608
  Receipt Date: 20100608
  Transmission Date: 20101027
  Serious: Yes (Hospitalization)
  Sender: FDA-Public Use
  Company Number: None

PATIENT
  Sex: Female
  Weight: 3.7 kg

DRUGS (2)
  1. CARBOPLATIN [Suspect]
     Dosage: 70 MG
  2. ETOPOSIDE [Suspect]
     Dosage: 20 MG

REACTIONS (1)
  - NO ADVERSE EVENT [None]
